FAERS Safety Report 11186815 (Version 1)
Quarter: 2015Q2

REPORT INFORMATION
  Report Type: Spontaneous
  Country: US (occurrence: US)
  Receive Date: 20150614
  Receipt Date: 20150614
  Transmission Date: 20150821
  Serious: Yes (Other)
  Sender: FDA-Public Use
  Company Number: US-JNJFOC-20150603254

PATIENT
  Sex: Male

DRUGS (1)
  1. NEUTROGENA NORWEGIAN FORMULA HAND CREAM [Suspect]
     Active Substance: COSMETICS
     Indication: DISTURBANCE IN SEXUAL AROUSAL
     Route: 061

REACTIONS (2)
  - Herpes virus infection [Unknown]
  - Intentional product use issue [Unknown]
